FAERS Safety Report 15490068 (Version 3)
Quarter: 2019Q1

REPORT INFORMATION
  Report Type: Spontaneous
  Country: FR (occurrence: FR)
  Receive Date: 20181011
  Receipt Date: 20190208
  Transmission Date: 20190417
  Serious: Yes (Hospitalization, Other)
  Sender: FDA-Public Use
  Company Number: FR-GLAXOSMITHKLINE-FR2018GSK181959

PATIENT
  Age: 32 Year
  Sex: Female
  Weight: 58 kg

DRUGS (5)
  1. EPITOMAX [Concomitant]
     Active Substance: TOPIRAMATE
     Indication: PRODUCT USED FOR UNKNOWN INDICATION
     Dosage: 200 MG, BID
     Route: 048
  2. DEPAKINE CHRONO [Interacting]
     Active Substance: VALPROATE SODIUM
     Indication: PRODUCT USED FOR UNKNOWN INDICATION
     Dosage: 1500 MG, QD
     Route: 048
  3. LAMICTAL [Suspect]
     Active Substance: LAMOTRIGINE
     Indication: EPILEPSY
     Dosage: 100 MG, BID
     Route: 048
  4. LAMICTAL [Interacting]
     Active Substance: LAMOTRIGINE
     Dosage: 50 MG, BID
     Route: 048
  5. TOLEXINE [Concomitant]
     Active Substance: DOXYCYCLINE
     Indication: ACNE
     Dosage: 100 MG, QD
     Route: 048

REACTIONS (22)
  - Fatigue [Unknown]
  - Neutropenia [Unknown]
  - Slow response to stimuli [Unknown]
  - Loss of consciousness [Unknown]
  - Urine abnormality [Unknown]
  - Head injury [Unknown]
  - Abnormal behaviour [Unknown]
  - Thrombocytopenia [Unknown]
  - Apathy [Unknown]
  - Malaise [Unknown]
  - Aggression [Unknown]
  - Tremor [Unknown]
  - Ataxia [Unknown]
  - Anticonvulsant drug level increased [Recovered/Resolved]
  - Obstruction [Unknown]
  - Dyskinesia [Unknown]
  - Epilepsy [Recovering/Resolving]
  - Anxiety [Unknown]
  - Fall [Unknown]
  - Insomnia [Unknown]
  - Drug interaction [Unknown]
  - Stubbornness [Unknown]

NARRATIVE: CASE EVENT DATE: 2018
